FAERS Safety Report 18187248 (Version 1)
Quarter: 2020Q3

REPORT INFORMATION
  Report Type: Spontaneous
  Country: US (occurrence: US)
  Receive Date: 20200824
  Receipt Date: 20200824
  Transmission Date: 20201103
  Serious: Yes (Other)
  Sender: FDA-Public Use
  Company Number: None

PATIENT
  Age: 79 Year
  Sex: Male

DRUGS (14)
  1. AMLODIPINE [Concomitant]
     Active Substance: AMLODIPINE BESYLATE
     Dates: start: 20190112
  2. FINASTERIDE 5MG [Concomitant]
     Active Substance: FINASTERIDE
     Dates: start: 20190320
  3. HYDROCODONE BITARTRATE AND ACETAMINOPHEN [Concomitant]
     Active Substance: ACETAMINOPHEN\HYDROCODONE BITARTRATE
     Dates: start: 20190531
  4. POTASSIUM CHLORIDE 20MEQ [Concomitant]
     Active Substance: POTASSIUM CHLORIDE
     Dates: start: 20200706
  5. TOVIAZ [Concomitant]
     Active Substance: FESOTERODINE FUMARATE
     Dates: start: 20190327
  6. PRADAXA 75MG [Concomitant]
     Dates: start: 20190712
  7. SOTALOL 120MG [Concomitant]
     Dates: start: 20200702
  8. TRELEGY ELLIPTA INHALER [Concomitant]
     Dates: start: 20200726
  9. CABOMETYX [Suspect]
     Active Substance: CABOZANTINIB S-MALATE
     Indication: LUNG NEOPLASM MALIGNANT
     Route: 048
     Dates: start: 20200724, end: 20200823
  10. ATORVASTATIN 40MG [Concomitant]
     Active Substance: ATORVASTATIN
     Dates: start: 20190117
  11. FUROSEMIDE 40MG [Concomitant]
     Active Substance: FUROSEMIDE
     Dates: start: 20191221
  12. GABAPENTIN 100MG [Concomitant]
     Active Substance: GABAPENTIN
     Dates: start: 20200806
  13. GLIMEPIRIDE 1MG [Concomitant]
     Active Substance: GLIMEPIRIDE
     Dates: start: 20181216
  14. LOSARTAN 50MG [Concomitant]
     Active Substance: LOSARTAN
     Dates: start: 20180720

REACTIONS (1)
  - Pain in extremity [None]

NARRATIVE: CASE EVENT DATE: 20200813
